FAERS Safety Report 8042241-0 (Version None)
Quarter: 2011Q4

REPORT INFORMATION
  Report Type: 
  Country: None (occurrence: None)
  Receive Date: 20111209
  Receipt Date: 20111027
  Transmission Date: 20120403
  Serious: Yes (Hospitalization)
  Sender: FDA-Public Use
  Company Number: 2011SP051142

PATIENT
  Sex: Male

DRUGS (1)
  1. VICTRELIS [Suspect]
     Indication: PRODUCT USED FOR UNKNOWN INDICATION
     Dosage: PO
     Route: 048
     Dates: start: 20111005

REACTIONS (4)
  - DIARRHOEA [None]
  - VOMITING [None]
  - PYREXIA [None]
  - NAUSEA [None]
